FAERS Safety Report 8848932 (Version 1)
Quarter: 2012Q4

REPORT INFORMATION
  Report Type: 
  Country: GB (occurrence: GB)
  Receive Date: 20121018
  Receipt Date: 20121018
  Transmission Date: 20130627
  Serious: Yes (Other)
  Sender: FDA-Public Use
  Company Number: GB-RANBAXY-2012R1-60808

PATIENT
  Age: 55 Year
  Sex: Female
  Weight: 82.6 kg

DRUGS (5)
  1. FLUCONAZOLE [Suspect]
     Indication: VULVOVAGINAL CANDIDIASIS
     Dosage: 150 mg, 1 weeks
     Route: 048
     Dates: start: 20120817, end: 20120908
  2. LORATADINE [Concomitant]
     Indication: URTICARIA
     Dosage: 10 mg, 1 days
     Route: 048
     Dates: start: 20120308
  3. METOCLOPRAMIDE [Concomitant]
     Indication: NAUSEA
     Dosage: 10 mg, tid
     Route: 048
     Dates: start: 20120529
  4. PARACETAMOL [Concomitant]
     Indication: PAIN
     Dosage: 1 g, 1 days
     Route: 048
     Dates: start: 20110308
  5. TRAMADOL [Concomitant]
     Indication: PAIN
     Dosage: 50 mg, qid
     Route: 048
     Dates: start: 20110224

REACTIONS (3)
  - Gingival ulceration [Recovering/Resolving]
  - Mouth ulceration [Recovering/Resolving]
  - Oral pain [Recovering/Resolving]
